FAERS Safety Report 4389636-4 (Version None)
Quarter: 2004Q2

REPORT INFORMATION
  Report Type: 
  Country: None (occurrence: None)
  Receive Date: 20040629
  Receipt Date: 20031119
  Transmission Date: 20050107
  Serious: Yes (Other)
  Sender: FDA-Public Use
  Company Number: NSADSS2002013858

PATIENT
  Sex: Female

DRUGS (1)
  1. DURAGESIC [Suspect]
     Dosage: TRANSDERMAL

REACTIONS (3)
  - DERMATITIS EXFOLIATIVE [None]
  - HYPERHIDROSIS [None]
  - OEDEMA PERIPHERAL [None]
